FAERS Safety Report 23075553 (Version 1)
Quarter: 2023Q4

REPORT INFORMATION
  Report Type: Spontaneous
  Country: FR (occurrence: FR)
  Receive Date: 20231017
  Receipt Date: 20231017
  Transmission Date: 20240110
  Serious: Yes (Other)
  Sender: FDA-Public Use
  Company Number: FR-AMGEN-FRASP2023183148

PATIENT

DRUGS (1)
  1. BEVACIZUMAB [Suspect]
     Active Substance: BEVACIZUMAB
     Indication: Rhegmatogenous retinal detachment
     Dosage: UNK

REACTIONS (3)
  - Rhegmatogenous retinal detachment [Unknown]
  - Cataract [Unknown]
  - Off label use [Unknown]
